FAERS Safety Report 6041871-5 (Version None)
Quarter: 2009Q1

REPORT INFORMATION
  Report Type: 
  Country: None (occurrence: None)
  Receive Date: 20090116
  Receipt Date: 20090109
  Transmission Date: 20090719
  Serious: Yes (Death, Hospitalization)
  Sender: FDA-Public Use
  Company Number: FR-BAYER-200910871GPV

PATIENT
  Age: 62 Year
  Sex: Female
  Weight: 48 kg

DRUGS (3)
  1. MABCAMPATH [Suspect]
     Indication: CHRONIC LYMPHOCYTIC LEUKAEMIA
     Route: 058
     Dates: start: 20081001, end: 20081126
  2. FLUDARA [Suspect]
     Indication: CHRONIC LYMPHOCYTIC LEUKAEMIA
     Route: 048
     Dates: start: 20081001, end: 20081126
  3. ENDOXAN [Suspect]
     Indication: CHRONIC LYMPHOCYTIC LEUKAEMIA
     Route: 048
     Dates: start: 20081001, end: 20081126

REACTIONS (4)
  - CARDIAC FAILURE [None]
  - FEBRILE NEUTROPENIA [None]
  - SUDDEN DEATH [None]
  - THROMBOCYTOPENIA [None]
